FAERS Safety Report 16926996 (Version 1)
Quarter: 2019Q4

REPORT INFORMATION
  Report Type: Spontaneous
  Country: US (occurrence: US)
  Receive Date: 20191016
  Receipt Date: 20191016
  Transmission Date: 20200122
  Serious: Yes (Other)
  Sender: FDA-Public Use
  Company Number: US-TEVA-2019-US-1121687

PATIENT
  Age: 9 Year
  Sex: Male

DRUGS (11)
  1. IMMUNOGLOBULIN IV [Suspect]
     Active Substance: HUMAN IMMUNOGLOBULIN G
     Indication: BLOOD IMMUNOGLOBULIN G DECREASED
     Route: 042
     Dates: start: 201610
  2. VINCRISTINE [Suspect]
     Active Substance: VINCRISTINE
     Indication: ACUTE LYMPHOCYTIC LEUKAEMIA
     Dosage: INDUCTION THERAPY
     Route: 065
  3. METHOTREXATE. [Suspect]
     Active Substance: METHOTREXATE
     Indication: ACUTE LYMPHOCYTIC LEUKAEMIA
     Dosage: MAINTENANCE THERAPY
     Route: 065
     Dates: start: 201507
  4. CEFDINIR. [Concomitant]
     Active Substance: CEFDINIR
     Indication: BLOOD IMMUNOGLOBULIN G DECREASED
     Route: 065
  5. VINCRISTINE [Suspect]
     Active Substance: VINCRISTINE
     Indication: ACUTE LYMPHOCYTIC LEUKAEMIA
     Dosage: MAINTENANCE THERAPY
     Route: 065
     Dates: start: 201507
  6. METHOTREXATE. [Suspect]
     Active Substance: METHOTREXATE
     Indication: ACUTE LYMPHOCYTIC LEUKAEMIA
     Dosage: MAINTENANCE REGIMENS WITH HIGH DOSE METHOTREXATE AND CAPIZZI METHOTREXATE
     Route: 065
  7. MERCAPTOPURINE. [Suspect]
     Active Substance: MERCAPTOPURINE
     Indication: ACUTE LYMPHOCYTIC LEUKAEMIA
     Dosage: MAINTENANCE THERAPY
     Route: 065
     Dates: start: 201507
  8. PREDNISONE. [Suspect]
     Active Substance: PREDNISONE
     Indication: ACUTE LYMPHOCYTIC LEUKAEMIA
     Dosage: MAINTENANCE THERAPY
     Route: 065
     Dates: start: 201507
  9. PEG-ASPARGINASE [Suspect]
     Active Substance: PEGASPARGASE
     Indication: ACUTE LYMPHOCYTIC LEUKAEMIA
     Dosage: INDUCTION THERAPY
     Route: 065
  10. DEXAMETHASONE. [Suspect]
     Active Substance: DEXAMETHASONE
     Indication: ACUTE LYMPHOCYTIC LEUKAEMIA
     Dosage: INDUCTION THERAPY
     Route: 065
  11. CYTARABINE. [Suspect]
     Active Substance: CYTARABINE
     Indication: ACUTE LYMPHOCYTIC LEUKAEMIA
     Dosage: INDUCTION THERAPY
     Route: 065

REACTIONS (5)
  - Epstein-Barr virus associated lymphoproliferative disorder [Recovered/Resolved]
  - Upper respiratory tract infection [Unknown]
  - Bone marrow failure [Unknown]
  - Blood immunoglobulin G decreased [Not Recovered/Not Resolved]
  - Sinusitis [Unknown]
